FAERS Safety Report 6879598-X (Version None)
Quarter: 2010Q3

REPORT INFORMATION
  Report Type: 
  Country: None (occurrence: None)
  Receive Date: 20100727
  Receipt Date: 20100716
  Transmission Date: 20110219
  Serious: Yes (Hospitalization, Other)
  Sender: FDA-Public Use
  Company Number: JP-ABBOTT-10P-087-0645683-00

PATIENT
  Sex: Male
  Weight: 55 kg

DRUGS (21)
  1. HUMIRA [Suspect]
     Indication: RHEUMATOID ARTHRITIS
     Route: 058
     Dates: start: 20090929, end: 20100302
  2. METHOTREXATE [Concomitant]
     Indication: RHEUMATOID ARTHRITIS
     Dates: end: 20100309
  3. BUCILLAMINE [Concomitant]
     Indication: RHEUMATOID ARTHRITIS
     Dates: start: 20050401, end: 20100312
  4. CYCLOSPORINE [Concomitant]
     Indication: RHEUMATOID ARTHRITIS
     Dates: start: 20100315, end: 20100325
  5. CYCLOSPORINE [Concomitant]
     Dates: start: 20100326, end: 20100415
  6. CYCLOSPORINE [Concomitant]
     Dates: start: 20100416, end: 20100422
  7. PREDNISOLONE [Concomitant]
     Indication: RHEUMATOID ARTHRITIS
     Route: 048
     Dates: end: 20100314
  8. ISONIAZID [Concomitant]
     Indication: ANTIBIOTIC PROPHYLAXIS
     Dates: start: 20090929
  9. FOLIC ACID [Concomitant]
     Indication: PROPHYLAXIS
     Dates: end: 20100311
  10. FOLIC ACID [Concomitant]
     Indication: ADVERSE DRUG REACTION
  11. MELOXICAM [Concomitant]
     Indication: RHEUMATOID ARTHRITIS
     Dates: end: 20100311
  12. ALFACALCIDOL [Concomitant]
     Indication: PRODUCT USED FOR UNKNOWN INDICATION
     Dates: start: 20091110, end: 20100131
  13. MECOBALAMIN [Concomitant]
     Indication: PRODUCT USED FOR UNKNOWN INDICATION
     Route: 048
     Dates: start: 20100407, end: 20100420
  14. MECOBALAMIN [Concomitant]
     Dosage: 28,30 MAR 10 AND 01.03.05 APR 10
     Route: 042
  15. FLUCONAZOLE [Concomitant]
     Indication: PRODUCT USED FOR UNKNOWN INDICATION
     Dates: start: 20100415
  16. BROTIZOLAM [Concomitant]
     Indication: INSOMNIA
     Dosage: 0.20  MG DAILY
     Dates: start: 20100419
  17. AN EXTRACT FROM INFLAMMATORY RABBIT SKIN INOCULATED BY VACCI [Concomitant]
     Indication: PRODUCT USED FOR UNKNOWN INDICATION
     Route: 042
  18. MEROPENEM [Concomitant]
     Indication: PRODUCT USED FOR UNKNOWN INDICATION
     Dates: start: 20100316, end: 20100324
  19. MINOCYCLINE HYDROCHLORIDE [Concomitant]
     Indication: PRODUCT USED FOR UNKNOWN INDICATION
     Dates: start: 20100316, end: 20100324
  20. NORMAL SALINE [Concomitant]
     Indication: PRODUCT USED FOR UNKNOWN INDICATION
     Route: 042
     Dates: start: 20100316, end: 20100324
  21. NORMAL SALINE [Concomitant]
     Dosage: 28, 30-MAR-2010 AND 01, 03, 04-APR-2010
     Route: 042

REACTIONS (7)
  - HYPOAESTHESIA [None]
  - HYPOXIA [None]
  - IMMUNOSUPPRESSION [None]
  - INFECTED CYST [None]
  - INTERSTITIAL LUNG DISEASE [None]
  - LUNG CYST [None]
  - SPINAL OSTEOARTHRITIS [None]
